FAERS Safety Report 11215370 (Version 2)
Quarter: 2015Q3

REPORT INFORMATION
  Report Type: Spontaneous
  Country: IT (occurrence: IT)
  Receive Date: 20150624
  Receipt Date: 20150806
  Transmission Date: 20151125
  Serious: Yes (Other)
  Sender: FDA-Public Use
  Company Number: IT-JNJFOC-20150615642

PATIENT
  Age: 37 Year
  Sex: Male

DRUGS (7)
  1. SIMPONI [Suspect]
     Active Substance: GOLIMUMAB
     Indication: COLITIS ULCERATIVE
     Route: 058
     Dates: start: 20150514
  2. MESAVANCOL [Concomitant]
     Active Substance: MESALAMINE
     Indication: COLITIS ULCERATIVE
     Dosage: 2 DOSES (UNITS)
     Route: 065
  3. MESALAZINE [Concomitant]
     Active Substance: MESALAMINE
     Route: 054
  4. MESALAZINE [Concomitant]
     Active Substance: MESALAMINE
     Route: 061
  5. SIMPONI [Suspect]
     Active Substance: GOLIMUMAB
     Indication: COLITIS ULCERATIVE
     Route: 058
     Dates: start: 20150415
  6. SIMPONI [Suspect]
     Active Substance: GOLIMUMAB
     Indication: COLITIS ULCERATIVE
     Route: 058
     Dates: start: 20150330
  7. PENTACOL [Concomitant]
     Active Substance: MESALAMINE
     Dosage: 1 DOSE (UNIT)
     Route: 065

REACTIONS (1)
  - Seronegative arthritis [Recovered/Resolved]

NARRATIVE: CASE EVENT DATE: 20150501
